FAERS Safety Report 7086236-2 (Version None)
Quarter: 2010Q4

REPORT INFORMATION
  Report Type: 
  Country: None (occurrence: None)
  Receive Date: 20101105
  Receipt Date: 20101101
  Transmission Date: 20110411
  Serious: Yes (Hospitalization)
  Sender: FDA-Public Use
  Company Number: US-AMGEN-USASP2010002429

PATIENT

DRUGS (3)
  1. ENBREL [Suspect]
     Indication: ANKYLOSING SPONDYLITIS
     Dates: start: 20040113
  2. PLAQUENIL [Concomitant]
  3. METHOTREXATE (TREXALL) [Concomitant]
     Dosage: 1 MG, QWK
     Dates: start: 20100401

REACTIONS (6)
  - BACK PAIN [None]
  - CYSTITIS [None]
  - HYPOAESTHESIA [None]
  - PARAESTHESIA [None]
  - SINUSITIS [None]
  - VISION BLURRED [None]
